FAERS Safety Report 5329689-X (Version None)
Quarter: 2007Q2

REPORT INFORMATION
  Report Type: 
  Country: None (occurrence: None)
  Receive Date: 20070521
  Receipt Date: 20070510
  Transmission Date: 20071010
  Serious: Yes (Hospitalization)
  Sender: FDA-Public Use
  Company Number: FR-BAXTER-2007BH003225

PATIENT
  Sex: Female

DRUGS (15)
  1. EXTRANEAL [Suspect]
     Indication: PERITONEAL DIALYSIS
     Route: 033
     Dates: start: 20060210
  2. EXTRANEAL [Suspect]
     Route: 033
     Dates: start: 20061001
  3. EXTRANEAL [Suspect]
     Route: 033
     Dates: start: 20061001, end: 20061101
  4. EXTRANEAL [Suspect]
     Route: 033
     Dates: start: 20061201, end: 20070120
  5. DIANEAL [Concomitant]
     Indication: PERITONEAL DIALYSIS
     Route: 033
     Dates: start: 20060210
  6. NUTRINEAL NOS WITH AMINO ACIDS [Concomitant]
     Indication: PERITONEAL DIALYSIS
     Route: 033
     Dates: start: 20060210
  7. FRESENIUS ISO-OSMOLAR SOLUTION [Concomitant]
     Indication: PERITONEAL DIALYSIS
     Route: 033
     Dates: start: 20040409
  8. CELIPROLOL [Concomitant]
     Dates: start: 20041027
  9. EUPRESSYL [Concomitant]
  10. COVERSYL /FRA/ [Concomitant]
  11. HYPERIUM [Concomitant]
  12. ACTRAPID HUMAN [Concomitant]
  13. FUROSEMIDE [Concomitant]
     Route: 048
  14. LANTUS [Concomitant]
     Route: 048
  15. EPOETIN BETA [Concomitant]
     Route: 042
     Dates: start: 20060721

REACTIONS (2)
  - PERITONITIS [None]
  - SCLEROSING ENCAPSULATING PERITONITIS [None]
